FAERS Safety Report 21154803 (Version 1)
Quarter: 2022Q3

REPORT INFORMATION
  Report Type: Spontaneous
  Country: US (occurrence: US)
  Receive Date: 20220801
  Receipt Date: 20220801
  Transmission Date: 20221027
  Serious: No
  Sender: FDA-Public Use
  Company Number: US-GILEAD-2022-0591241

PATIENT
  Sex: Male

DRUGS (10)
  1. SOFOSBUVIR\VELPATASVIR [Suspect]
     Active Substance: SOFOSBUVIR\VELPATASVIR
     Indication: Chronic hepatitis C
     Dosage: 1 DOSAGE FORM, QD
     Route: 048
  2. ACETAMINOPHEN\HYDROCODONE [Concomitant]
     Active Substance: ACETAMINOPHEN\HYDROCODONE
  3. NICOTINE [Concomitant]
     Active Substance: NICOTINE
  4. NITROSTAT [Concomitant]
     Active Substance: NITROGLYCERIN
  5. LORATADINE [Concomitant]
     Active Substance: LORATADINE
  6. LISINOPRIL [Concomitant]
     Active Substance: LISINOPRIL
  7. TAMSULOSIN HYDROCHLORIDE [Concomitant]
     Active Substance: TAMSULOSIN HYDROCHLORIDE
  8. METOPROLOL SUCCINATE [Concomitant]
     Active Substance: METOPROLOL SUCCINATE
  9. IBUPROFEN [Concomitant]
     Active Substance: IBUPROFEN
  10. NICOTINE POLACRILEX [Concomitant]
     Active Substance: NICOTINE

REACTIONS (1)
  - Dizziness [Recovered/Resolved]
